FAERS Safety Report 9478448 (Version 1)
Quarter: 2013Q3

REPORT INFORMATION
  Report Type: Spontaneous
  Country: AU (occurrence: AU)
  Receive Date: 20130827
  Receipt Date: 20130827
  Transmission Date: 20140515
  Serious: Yes (Hospitalization)
  Sender: FDA-Public Use
  Company Number: AU-ELI_LILLY_AND_COMPANY-AU201308005176

PATIENT
  Age: 57 Year
  Sex: Female

DRUGS (8)
  1. OLANZAPINE [Suspect]
     Indication: SCHIZOPHRENIA
     Dosage: 17.5 MG, EACH EVENING
  2. CHLORPROMAZINE [Interacting]
     Dosage: 25 MG, EACH EVENING
  3. CHLORPROMAZINE [Interacting]
     Dosage: 50 MG, EACH EVENING
  4. BENZOTROPINE [Interacting]
     Indication: TREMOR
     Dosage: 2 MG, BID
  5. DULCOLAX [Interacting]
     Indication: CONSTIPATION
  6. MOVICOL /01625101/ [Interacting]
     Indication: CONSTIPATION
     Dosage: 3 DF, QD
  7. ACTILAX /00163401/ [Interacting]
     Indication: CONSTIPATION
  8. MAGNESIUM [Concomitant]
     Indication: CONSTIPATION

REACTIONS (5)
  - Tremor [Recovered/Resolved]
  - Musculoskeletal stiffness [Recovered/Resolved]
  - Eye movement disorder [Recovered/Resolved]
  - Constipation [Recovered/Resolved]
  - Drug interaction [Recovered/Resolved]
